FAERS Safety Report 5637463-X (Version None)
Quarter: 2008Q1

REPORT INFORMATION
  Report Type: 
  Country: None (occurrence: None)
  Receive Date: 20080225
  Receipt Date: 20080213
  Transmission Date: 20080703
  Serious: Yes (Other)
  Sender: FDA-Public Use
  Company Number: BE-PFIZER INC-2008013621

PATIENT
  Age: 69 Year
  Sex: Male

DRUGS (1)
  1. VFEND [Suspect]
     Indication: PROPHYLAXIS
     Route: 048

REACTIONS (2)
  - PHOTOSENSITIVITY REACTION [None]
  - SQUAMOUS CELL CARCINOMA OF SKIN [None]
